FAERS Safety Report 7731807-0 (Version None)
Quarter: 2011Q3

REPORT INFORMATION
  Report Type: 
  Country: None (occurrence: None)
  Receive Date: 20110906
  Receipt Date: 20110706
  Transmission Date: 20111222
  Serious: No
  Sender: FDA-Public Use
  Company Number: US-AMGEN-USASP2011034227

PATIENT
  Age: 82 Year
  Sex: Female

DRUGS (4)
  1. CALCIUM CARBONATE [Concomitant]
     Dosage: UNK
  2. PROLIA [Suspect]
     Indication: BONE DENSITY ABNORMAL
     Dosage: 60 MG, Q6MO
     Dates: start: 20110113
  3. PROLIA [Suspect]
  4. VITAMIN D [Concomitant]
     Dosage: UNK

REACTIONS (1)
  - RASH [None]
